FAERS Safety Report 26102601 (Version 1)
Quarter: 2025Q4

REPORT INFORMATION
  Report Type: Report from Study
  Country: US (occurrence: US)
  Receive Date: 20251128
  Receipt Date: 20251128
  Transmission Date: 20260117
  Serious: Yes (Other)
  Sender: ABBVIE
  Company Number: US-ABBVIE-6518463

PATIENT
  Age: 50 Year
  Sex: Male

DRUGS (1)
  1. RINVOQ [Suspect]
     Active Substance: UPADACITINIB
     Indication: Crohn^s disease
     Route: 048
     Dates: start: 20251003

REACTIONS (8)
  - Basal cell carcinoma [Unknown]
  - Dizziness [Recovered/Resolved]
  - Headache [Recovering/Resolving]
  - Acne [Unknown]
  - Dysgeusia [Recovering/Resolving]
  - Nausea [Unknown]
  - Parosmia [Unknown]
  - Hunger [Unknown]

NARRATIVE: CASE EVENT DATE: 20250101
